FAERS Safety Report 4468004-0 (Version None)
Quarter: 2004Q4

REPORT INFORMATION
  Report Type: 
  Country: None (occurrence: None)
  Receive Date: 20041004
  Receipt Date: 20040922
  Transmission Date: 20050328
  Serious: Yes (Hospitalization)
  Sender: FDA-Public Use
  Company Number: 2004223829DE

PATIENT
  Age: 68 Year
  Sex: Female
  Weight: 72 kg

DRUGS (3)
  1. BEXTRA [Suspect]
     Indication: RHEUMATOID ARTHRITIS
     Dosage: 20 MG , QD, ORAL
     Route: 048
     Dates: start: 20040219, end: 20040618
  2. ACETYLSALICYLIC ACID [Concomitant]
  3. PREDNISOLONE [Concomitant]

REACTIONS (8)
  - CIRCULATORY COLLAPSE [None]
  - DIZZINESS [None]
  - EXANTHEM [None]
  - LEUKOCYTOCLASTIC VASCULITIS [None]
  - LUPUS-LIKE SYNDROME [None]
  - NAUSEA [None]
  - SOMNOLENCE [None]
  - URTICARIA [None]
